FAERS Safety Report 5688712-3 (Version None)
Quarter: 2008Q1

REPORT INFORMATION
  Report Type: 
  Country: None (occurrence: None)
  Receive Date: 20080331
  Receipt Date: 20080324
  Transmission Date: 20080703
  Serious: Yes (Hospitalization)
  Sender: FDA-Public Use
  Company Number: US-MERCK-0803USA03920

PATIENT
  Sex: Male

DRUGS (1)
  1. STROMECTOL [Suspect]
     Indication: STRONGYLOIDIASIS
     Route: 048

REACTIONS (2)
  - ELECTROCARDIOGRAM QRS COMPLEX PROLONGED [None]
  - TOXIC EPIDERMAL NECROLYSIS [None]
